FAERS Safety Report 20017273 (Version 3)
Quarter: 2022Q3

REPORT INFORMATION
  Report Type: Spontaneous
  Country: US (occurrence: US)
  Receive Date: 20211030
  Receipt Date: 20220708
  Transmission Date: 20221026
  Serious: No
  Sender: FDA-Public Use
  Company Number: US-LUPIN PHARMACEUTICALS INC.-2021-20707

PATIENT
  Age: 91 Year
  Sex: Male

DRUGS (5)
  1. ALBUTEROL SULFATE [Suspect]
     Active Substance: ALBUTEROL SULFATE
     Indication: Product used for unknown indication
     Dosage: UNK UNK, PRN, AS NEEDED 2 PUFFS 4 TIMES PER DAY
  2. ALBUTEROL SULFATE [Suspect]
     Active Substance: ALBUTEROL SULFATE
     Dosage: UNK UNK, PRN, AS NEEDED 2 PUFFS 4 TIMES PER DAY
  3. ALBUTEROL SULFATE [Suspect]
     Active Substance: ALBUTEROL SULFATE
     Dosage: UNK UNK, PRN, AS NEEDED 2 PUFFS 4 TIMES PER DAY
  4. ALBUTEROL SULFATE [Suspect]
     Active Substance: ALBUTEROL SULFATE
     Dosage: UNK UNK, PRN, AS NEEDED 2 PUFFS 4 TIMES PER DAY
  5. ALBUTEROL SULFATE [Suspect]
     Active Substance: ALBUTEROL SULFATE
     Dosage: UNK UNK, PRN, AS NEEDED 2 PUFFS 4 TIMES PER DAY

REACTIONS (3)
  - Wrong technique in product usage process [Unknown]
  - Product substitution issue [Unknown]
  - No adverse event [Unknown]
